FAERS Safety Report 7576911-5 (Version None)
Quarter: 2011Q2

REPORT INFORMATION
  Report Type: 
  Country: None (occurrence: None)
  Receive Date: 20110628
  Receipt Date: 20110519
  Transmission Date: 20111010
  Serious: Yes (Hospitalization, Other)
  Sender: FDA-Public Use
  Company Number: US-BAYER-201039431NA

PATIENT
  Sex: Female
  Weight: 136.5 kg

DRUGS (8)
  1. YAZ [Suspect]
     Indication: CONTRACEPTION
     Dosage: UNK UNK, QD
     Route: 048
     Dates: start: 20060101, end: 20091101
  2. YAZ [Suspect]
     Indication: ENDOMETRIOSIS
  3. YASMIN [Suspect]
     Indication: CONTRACEPTION
     Dosage: UNK UNK, QD
     Route: 048
     Dates: start: 20060101, end: 20091101
  4. PROZAC [Concomitant]
     Dosage: UNK
     Dates: start: 20000101
  5. CIPROFLOXACIN [Concomitant]
     Dosage: 500 MG, UNK
     Route: 048
  6. YASMIN [Suspect]
     Indication: ENDOMETRIOSIS
  7. PROAIR HFA [Concomitant]
     Indication: WHEEZING
     Dosage: 2 PUFFS EVERY 4 HOUS
  8. FLUOXETINE HCL [Concomitant]
     Dosage: 20 MG, QD
     Route: 048

REACTIONS (4)
  - ANXIETY [None]
  - CHOLECYSTITIS CHRONIC [None]
  - GALLBLADDER DISORDER [None]
  - PAIN [None]
